FAERS Safety Report 25524248 (Version 2)
Quarter: 2025Q3

REPORT INFORMATION
  Report Type: Spontaneous
  Country: JP (occurrence: JP)
  Receive Date: 20250707
  Receipt Date: 20250710
  Transmission Date: 20251021
  Serious: Yes (Other)
  Sender: PFIZER
  Company Number: JP-MLMSERVICE-20250624-PI547890-00082-1

PATIENT
  Age: 68 Year
  Sex: Male

DRUGS (2)
  1. PACLITAXEL [Suspect]
     Active Substance: PACLITAXEL
     Indication: Lung carcinoma cell type unspecified stage II
     Dosage: 40 MG/M2, WEEKLY (6 COURSES ADMINISTERED ON DAYS 1, 8, 15, 22, 29, AND 36)
  2. CARBOPLATIN [Suspect]
     Active Substance: CARBOPLATIN
     Indication: Lung carcinoma cell type unspecified stage II
     Dosage: UNK, WEEKLY (6 COURSES ADMINISTERED ON DAYS 1, 8, 15, 22, 29, AND 36)

REACTIONS (4)
  - Neutrophil count decreased [Unknown]
  - Radiation pneumonitis [Unknown]
  - Platelet count decreased [Unknown]
  - Off label use [Unknown]
